FAERS Safety Report 9536911 (Version 1)
Quarter: 2013Q3

REPORT INFORMATION
  Report Type: Spontaneous
  Country: AU (occurrence: AU)
  Receive Date: 20130919
  Receipt Date: 20130919
  Transmission Date: 20140515
  Serious: Yes (Other)
  Sender: FDA-Public Use
  Company Number: AU-PFIZER INC-2013268615

PATIENT
  Sex: Male

DRUGS (2)
  1. EFEXOR XR [Suspect]
     Dosage: 225MG DAILY
  2. CADUET [Interacting]
     Dosage: 10/80, UNK

REACTIONS (2)
  - Suicidal behaviour [Unknown]
  - Drug interaction [Unknown]
